FAERS Safety Report 5773152-9 (Version None)
Quarter: 2008Q2

REPORT INFORMATION
  Report Type: 
  Country: None (occurrence: None)
  Receive Date: 20080615
  Receipt Date: 20080324
  Transmission Date: 20081010
  Serious: No
  Sender: FDA-Public Use
  Company Number: US-BAYER-200811324BCC

PATIENT
  Age: 90 Year
  Sex: Female

DRUGS (1)
  1. ALEVE [Suspect]
     Indication: MUSCULOSKELETAL STIFFNESS
     Route: 048
     Dates: start: 20080324

REACTIONS (1)
  - MUSCULOSKELETAL STIFFNESS [None]
